FAERS Safety Report 7954432-5 (Version None)
Quarter: 2011Q4

REPORT INFORMATION
  Report Type: 
  Country: None (occurrence: None)
  Receive Date: 20111202
  Receipt Date: 20111122
  Transmission Date: 20120403
  Serious: Yes (Hospitalization)
  Sender: FDA-Public Use
  Company Number: FR-GLAXOSMITHKLINE-B0752153B

PATIENT
  Sex: Male
  Weight: 68 kg

DRUGS (5)
  1. PAZOPANIB [Suspect]
     Indication: NEOPLASM MALIGNANT
     Dosage: 800MG PER DAY
     Route: 048
     Dates: start: 20110824
  2. LEVOTHYROXINE SODIUM [Concomitant]
     Indication: HYPOTHYROIDISM
     Dosage: 100MCG PER DAY
     Route: 048
     Dates: start: 20110930
  3. AMOXICILLIN TRIHYDRATE [Concomitant]
     Indication: OROPHARYNGEAL PAIN
     Dosage: 2G PER DAY
     Route: 048
     Dates: start: 20111006, end: 20111012
  4. PRIMPERAN TAB [Concomitant]
     Indication: NAUSEA
     Route: 048
     Dates: start: 20111019
  5. NICARDIPINE HCL [Concomitant]
     Indication: HYPERTENSION
     Route: 048
     Dates: start: 20110812

REACTIONS (1)
  - THROMBOTIC MICROANGIOPATHY [None]
